FAERS Safety Report 5078878-0 (Version None)
Quarter: 2006Q3

REPORT INFORMATION
  Report Type: 
  Country: None (occurrence: None)
  Receive Date: 20060809
  Receipt Date: 20060727
  Transmission Date: 20061208
  Serious: Yes (Other)
  Sender: FDA-Public Use
  Company Number: CHPA2006US07306

PATIENT
  Age: 93 Year
  Sex: Female
  Weight: 65.8 kg

DRUGS (13)
  1. TRANSDERM SCOP [Suspect]
     Indication: LUNG DISORDER
     Dosage: 1.5 MG, Q72H, TRANSDERMAL
     Route: 062
     Dates: start: 20060727, end: 20060727
  2. DIAZEPAM [Concomitant]
  3. LASIX [Concomitant]
  4. DILANTIN [Concomitant]
  5. LOTREL [Concomitant]
  6. REGLAN [Concomitant]
  7. MEPHYTON             (PHYTOMENADIONE) [Concomitant]
  8. COREG [Concomitant]
  9. HYDROCODONE BITARTRATE [Concomitant]
  10. MIRALAX [Concomitant]
  11. PREVACID [Concomitant]
  12. IRON [Concomitant]
  13. POTASSIUM CHLORIDE [Concomitant]

REACTIONS (3)
  - BLOOD GLUCOSE INCREASED [None]
  - OFF LABEL USE [None]
  - RESPIRATORY RATE INCREASED [None]
